FAERS Safety Report 17410784 (Version 2)
Quarter: 2020Q2

REPORT INFORMATION
  Report Type: Report from Study
  Country: US (occurrence: US)
  Receive Date: 20200212
  Receipt Date: 20200407
  Transmission Date: 20200713
  Serious: No
  Sender: FDA-Public Use
  Company Number: NVSC2020US036902

PATIENT
  Age: 41 Year
  Sex: Female

DRUGS (3)
  1. COSENTYX [Suspect]
     Active Substance: SECUKINUMAB
     Indication: ANKYLOSING SPONDYLITIS
     Dosage: 150 MG/KG, QMO
     Route: 058
     Dates: start: 20200101
  2. COSENTYX [Suspect]
     Active Substance: SECUKINUMAB
     Dosage: 150 MG/KG, QMO
     Route: 058
     Dates: start: 20200210
  3. COSENTYX [Suspect]
     Active Substance: SECUKINUMAB
     Route: 058
     Dates: start: 20200309

REACTIONS (2)
  - Skin burning sensation [Unknown]
  - Injection site mass [Unknown]

NARRATIVE: CASE EVENT DATE: 20200101
